FAERS Safety Report 19079466 (Version 1)
Quarter: 2021Q1

REPORT INFORMATION
  Report Type: Spontaneous
  Country: US (occurrence: US)
  Receive Date: 20210331
  Receipt Date: 20210331
  Transmission Date: 20210420
  Serious: No
  Sender: FDA-Public Use
  Company Number: US-AMGEN-USASP2021047212

PATIENT
  Age: 3 Year
  Sex: Male

DRUGS (1)
  1. ARANESP [Suspect]
     Active Substance: DARBEPOETIN ALFA
     Indication: NORMOCYTIC ANAEMIA
     Dosage: 10 MICROGRAM EVERY 10 DAYS
     Route: 065

REACTIONS (1)
  - Off label use [Unknown]
